FAERS Safety Report 6310889-7 (Version None)
Quarter: 2009Q3

REPORT INFORMATION
  Report Type: 
  Country: None (occurrence: None)
  Receive Date: 20090812
  Receipt Date: 20090729
  Transmission Date: 20100115
  Serious: No
  Sender: FDA-Public Use
  Company Number: 2009-1499

PATIENT
  Age: 59 Year
  Sex: Male

DRUGS (2)
  1. SOMATULINE AUTOSOLUTION   (LANREOTIDE ACETATE) [Suspect]
     Indication: CARCINOID TUMOUR
     Dosage: (90 MG, 1 IN 4 WK) INTRAMUSCULAR
     Route: 030
     Dates: start: 20080401, end: 20080810
  2. SOMATULINE AUTOSOLUTION 120MG (LANREOTIDE) (LANREOTIDE ACETATE) [Suspect]
     Indication: CARCINOID TUMOUR
     Dosage: (120 MG, 1 IN 4 WK) INTRAMUSCULAR
     Route: 030
     Dates: start: 20080810, end: 20090101

REACTIONS (1)
  - INJECTION SITE NODULE [None]
